FAERS Safety Report 19645519 (Version 2)
Quarter: 2021Q4

REPORT INFORMATION
  Report Type: Other
  Country: IT (occurrence: IT)
  Receive Date: 20210802
  Receipt Date: 20211018
  Transmission Date: 20220303
  Serious: Yes (Hospitalization, Other)
  Sender: FDA-Public Use
  Company Number: IT-STADA-229122

PATIENT
  Age: 70 Year
  Sex: Male

DRUGS (6)
  1. RITUXIMAB [Suspect]
     Active Substance: RITUXIMAB
     Indication: B-cell lymphoma
     Dosage: RECEIVED 6 COURSES OF R-CHOP
     Route: 065
     Dates: end: 202002
  2. VINCRISTINE [Suspect]
     Active Substance: VINCRISTINE
     Indication: B-cell lymphoma
     Dosage: RECEIVED SIX COURSES OF R-CHOP
     Route: 065
     Dates: end: 202002
  3. SODIUM CHLORIDE [Suspect]
     Active Substance: SODIUM CHLORIDE
     Indication: Diffuse large B-cell lymphoma
     Dosage: COMPLETED 6 COURSES OF R-CHOP
     Route: 065
     Dates: start: 202002
  4. PREDNISONE [Suspect]
     Active Substance: PREDNISONE
     Indication: B-cell lymphoma
     Dosage: RECEIVED SIX COURSES OF R-CHOP
     Route: 065
     Dates: end: 202002
  5. DOXORUBICIN [Suspect]
     Active Substance: DOXORUBICIN
     Indication: B-cell lymphoma
     Dosage: RECEIVED SIX COURSES OF R-CHOP
     Route: 065
     Dates: end: 202002
  6. CYCLOPHOSPHAMIDE [Concomitant]
     Active Substance: CYCLOPHOSPHAMIDE
     Indication: B-cell lymphoma
     Dosage: RECEIVED 6 COURSES OF R-CHOP
     Route: 065
     Dates: end: 202002

REACTIONS (3)
  - COVID-19 pneumonia [Recovered/Resolved]
  - Off label use [Unknown]
  - Immunodeficiency [Unknown]
